FAERS Safety Report 9264632 (Version 2)
Quarter: 2013Q2

REPORT INFORMATION
  Report Type: Spontaneous
  Country: US (occurrence: US)
  Receive Date: 20130501
  Receipt Date: 20130625
  Transmission Date: 20140414
  Serious: Yes (Death)
  Sender: FDA-Public Use
  Company Number: US-BIOGENIDEC-2013BI038526

PATIENT
  Sex: Male

DRUGS (4)
  1. AVONEX [Suspect]
     Indication: MULTIPLE SCLEROSIS
     Route: 030
     Dates: start: 20101109
  2. OXYBUTYNIN [Concomitant]
  3. FLOMAX [Concomitant]
  4. VESICARE [Concomitant]

REACTIONS (1)
  - Metastatic neoplasm [Fatal]
